FAERS Safety Report 25598971 (Version 1)
Quarter: 2025Q3

REPORT INFORMATION
  Report Type: Spontaneous
  Country: CN (occurrence: CN)
  Receive Date: 20250724
  Receipt Date: 20250724
  Transmission Date: 20251020
  Serious: Yes (Hospitalization)
  Sender: BEIGENE
  Company Number: CN-BEIGENE-BGN-2025-011812

PATIENT
  Age: 70 Year
  Weight: 70 kg

DRUGS (3)
  1. TISLELIZUMAB [Suspect]
     Active Substance: TISLELIZUMAB
     Indication: Small cell lung cancer
  2. CARBOPLATIN [Suspect]
     Active Substance: CARBOPLATIN
     Indication: Small cell lung cancer
  3. ETOPOSIDE [Suspect]
     Active Substance: ETOPOSIDE
     Indication: Small cell lung cancer

REACTIONS (1)
  - Myelosuppression [Unknown]
